FAERS Safety Report 8041913-1 (Version None)
Quarter: 2012Q1

REPORT INFORMATION
  Report Type: 
  Country: None (occurrence: None)
  Receive Date: 20120112
  Receipt Date: 20120112
  Transmission Date: 20120608
  Serious: Yes (Death, Other)
  Sender: FDA-Public Use
  Company Number: None

PATIENT
  Sex: Male
  Weight: 68.038 kg

DRUGS (2)
  1. ARZERRA [Concomitant]
  2. RITUXAN [Suspect]

REACTIONS (2)
  - CREUTZFELDT-JAKOB DISEASE [None]
  - INFECTION IN AN IMMUNOCOMPROMISED HOST [None]
